FAERS Safety Report 21978717 (Version 2)
Quarter: 2023Q1

REPORT INFORMATION
  Report Type: Spontaneous
  Country: US (occurrence: US)
  Receive Date: 20230210
  Receipt Date: 20230215
  Transmission Date: 20230417
  Serious: Yes (Other)
  Sender: FDA-Public Use
  Company Number: US-UNITED THERAPEUTICS-UNT-2023-001319

PATIENT
  Age: 49 Year
  Sex: Female
  Weight: 45.351 kg

DRUGS (6)
  1. REMODULIN [Suspect]
     Active Substance: TREPROSTINIL
     Indication: Pulmonary arterial hypertension
     Dosage: 0.040 ?G/KG, CONTINUING (SELF-FILL CASSETTE WITH 2.2 ML WITH RATE OF 24 MCL/HOUR)
     Route: 058
  2. REMODULIN [Suspect]
     Active Substance: TREPROSTINIL
     Dosage: UNK, CONTINUING
     Route: 058
     Dates: start: 20210730
  3. REMODULIN [Suspect]
     Active Substance: TREPROSTINIL
     Indication: Pulmonary arterial hypertension
     Dosage: 0.040 ?G/KG, CONTINUING (SELF-FILL CASSETTE WITH 2.2 ML WITH RATE OF 24 MCL/HOUR)
     Route: 058
  4. REMODULIN [Suspect]
     Active Substance: TREPROSTINIL
     Dosage: UNK, CONTINUING
     Route: 058
  5. REMODULIN [Suspect]
     Active Substance: TREPROSTINIL
     Dosage: UNK, CONTINUING (RATE DECREASED)
     Route: 058
  6. SILDENAFIL [Concomitant]
     Active Substance: SILDENAFIL
     Indication: Product used for unknown indication
     Dosage: UNK
     Route: 065

REACTIONS (9)
  - Diarrhoea [Unknown]
  - Muscular weakness [Unknown]
  - Weight decreased [Unknown]
  - Abdominal pain [Unknown]
  - Pain [Unknown]
  - Vomiting [Unknown]
  - Nausea [Unknown]
  - Abdominal distension [Unknown]
  - Device issue [Unknown]

NARRATIVE: CASE EVENT DATE: 20230201
